FAERS Safety Report 8034489-6 (Version None)
Quarter: 2012Q1

REPORT INFORMATION
  Report Type: 
  Country: None (occurrence: None)
  Receive Date: 20120110
  Receipt Date: 20120105
  Transmission Date: 20120608
  Serious: Yes (Death, Hospitalization)
  Sender: FDA-Public Use
  Company Number: AU-B.I. PHARMACEUTICALS,INC./RIDGEFIELD-2011-AU-01927AU

PATIENT
  Sex: Female
  Weight: 55.5 kg

DRUGS (4)
  1. RAMIPRIL [Concomitant]
  2. PRADAXA [Suspect]
     Indication: ATRIAL FIBRILLATION
     Dosage: 220 MG
  3. DIGOXIN [Concomitant]
  4. FUROSEMIDE [Concomitant]

REACTIONS (3)
  - BRONCHOPNEUMONIA [None]
  - SKIN ULCER [None]
  - CARDIAC FAILURE CONGESTIVE [None]
